FAERS Safety Report 9971522 (Version 1)
Quarter: 2014Q1

REPORT INFORMATION
  Report Type: Spontaneous
  Country: US (occurrence: None)
  Receive Date: 20140305
  Receipt Date: 20140305
  Transmission Date: 20141002
  Serious: Yes (Hospitalization)
  Sender: FDA-Public Use
  Company Number: None

PATIENT
  Age: 70 Year
  Sex: Female
  Weight: 69.4 kg

DRUGS (2)
  1. DILAUDID [Suspect]
     Indication: PROCEDURAL PAIN
     Dosage: INTO VEIN
     Route: 042
  2. DILAUDID [Suspect]
     Indication: SHOULDER OPERATION
     Dosage: INTO VEIN
     Route: 042

REACTIONS (2)
  - Drug effect decreased [None]
  - Hypertension [None]
